FAERS Safety Report 4696603-X (Version None)
Quarter: 2005Q2

REPORT INFORMATION
  Report Type: 
  Country: None (occurrence: None)
  Receive Date: 20050620
  Receipt Date: 20041202
  Transmission Date: 20051028
  Serious: Yes (Hospitalization)
  Sender: FDA-Public Use
  Company Number: 200419264US

PATIENT
  Age: 64 Year
  Sex: Female

DRUGS (11)
  1. LANTUS [Suspect]
     Indication: DIABETES MELLITUS NON-INSULIN-DEPENDENT
     Dosage: 20 U HS
  2. LANTUS [Suspect]
     Indication: DIABETES MELLITUS NON-INSULIN-DEPENDENT
     Dosage: 40 U QD
  3. LANTUS [Suspect]
     Indication: DIABETES MELLITUS NON-INSULIN-DEPENDENT
     Dosage: 30 U QD
  4. PIOGLITAZONE HCL [Concomitant]
  5. POTASSIUM CHLORIDE [Concomitant]
  6. HYDROCHLOROTHIAZIDE [Concomitant]
  7. METFORMIN HYDROCHLORIDE, GLIBENCLAMIDE (GLUCOVANCE) [Concomitant]
  8. BLOOD PRESSURE MEDICATIONS NOS [Concomitant]
  9. CHOLESTEROL MEDICATION NOS [Concomitant]
  10. NORVASC [Concomitant]
  11. ZANTAC [Concomitant]

REACTIONS (2)
  - BLOOD GLUCOSE DECREASED [None]
  - BLOOD GLUCOSE INCREASED [None]
